FAERS Safety Report 5127763-4 (Version None)
Quarter: 2006Q4

REPORT INFORMATION
  Report Type: 
  Country: None (occurrence: None)
  Receive Date: 20061016
  Receipt Date: 20061009
  Transmission Date: 20070319
  Serious: Yes (Death)
  Sender: FDA-Public Use
  Company Number: US-BRISTOL-MYERS SQUIBB COMPANY-13535265

PATIENT
  Age: 33 Year
  Sex: Male

DRUGS (1)
  1. MEGACE [Suspect]
     Indication: INCREASED APPETITE

REACTIONS (1)
  - DEATH [None]
